FAERS Safety Report 12586145 (Version 1)
Quarter: 2016Q3

REPORT INFORMATION
  Report Type: Spontaneous
  Country: US (occurrence: None)
  Receive Date: 20160722
  Receipt Date: 20160722
  Transmission Date: 20161109
  Serious: Yes (Disabling)
  Sender: FDA-Public Use
  Company Number: None

PATIENT
  Age: 34 Year
  Sex: Female
  Weight: 72.12 kg

DRUGS (1)
  1. NEXPLANON [Suspect]
     Active Substance: ETONOGESTREL

REACTIONS (7)
  - Weight decreased [None]
  - Mood swings [None]
  - Depression [None]
  - Uterine leiomyoma [None]
  - Menorrhagia [None]
  - Adenomyosis [None]
  - Anxiety [None]

NARRATIVE: CASE EVENT DATE: 20130731
